FAERS Safety Report 7508785-2 (Version None)
Quarter: 2011Q2

REPORT INFORMATION
  Report Type: 
  Country: None (occurrence: None)
  Receive Date: 20110527
  Receipt Date: 20110221
  Transmission Date: 20111010
  Serious: No
  Sender: FDA-Public Use
  Company Number: A0914666A

PATIENT
  Age: 70 Year
  Sex: Female

DRUGS (3)
  1. QVAR 40 [Concomitant]
  2. DIOXIN [Concomitant]
  3. VENTOLIN [Suspect]
     Indication: EMPHYSEMA
     Dosage: 2PUFF THREE TIMES PER DAY
     Route: 055
     Dates: start: 20110201

REACTIONS (1)
  - NON-CARDIAC CHEST PAIN [None]
